FAERS Safety Report 7703533-5 (Version None)
Quarter: 2011Q3

REPORT INFORMATION
  Report Type: 
  Country: None (occurrence: None)
  Receive Date: 20110823
  Receipt Date: 20110818
  Transmission Date: 20111222
  Serious: Yes (Death, Other)
  Sender: FDA-Public Use
  Company Number: US-SANOFI-AVENTIS-2011SA053054

PATIENT

DRUGS (3)
  1. BEVACIZUMAB [Suspect]
     Route: 042
  2. OXALIPLATIN [Suspect]
     Dosage: OXALIPLATIN AT A DOSE OF 130 MG/M2 OVER 2 HOURS ON DAY 1 OF EACH CYCLE.
     Route: 042
  3. CAPECITABINE [Suspect]
     Dosage: CAPECITABINE AT A DOSE OF 825 MG/M2 TWICE A DAY FROM DAYS 1 TO 14 OF EACH CYCLE.
     Route: 048

REACTIONS (13)
  - FATIGUE [None]
  - SEPSIS [None]
  - PERIPHERAL SENSORY NEUROPATHY [None]
  - ATRIAL FIBRILLATION [None]
  - GASTRIC PERFORATION [None]
  - DIARRHOEA [None]
  - VOMITING [None]
  - NAUSEA [None]
  - HYPERGLYCAEMIA [None]
  - PALMAR-PLANTAR ERYTHRODYSAESTHESIA SYNDROME [None]
  - DECREASED APPETITE [None]
  - ANAEMIA [None]
  - OEDEMA [None]
